FAERS Safety Report 22661240 (Version 1)
Quarter: 2023Q2

REPORT INFORMATION
  Report Type: Spontaneous
  Country: DE (occurrence: DE)
  Receive Date: 20230630
  Receipt Date: 20230630
  Transmission Date: 20230722
  Serious: No
  Sender: FDA-Public Use
  Company Number: DE-JAZZ-2022-DE-026758

PATIENT
  Sex: Female

DRUGS (1)
  1. CANNABIDIOL [Suspect]
     Active Substance: CANNABIDIOL
     Indication: Myoclonic epilepsy
     Dosage: UNK

REACTIONS (3)
  - Hepatic enzyme increased [Unknown]
  - Pre-existing condition improved [Recovering/Resolving]
  - Off label use [Unknown]
